FAERS Safety Report 4864591-9 (Version None)
Quarter: 2005Q4

REPORT INFORMATION
  Report Type: 
  Country: None (occurrence: None)
  Receive Date: 20051222
  Receipt Date: 20050830
  Transmission Date: 20060501
  Serious: Yes (Death, Life-Threatening, Hospitalization, Disabling, Other)
  Sender: FDA-Public Use
  Company Number: PHFR2005GB02880

PATIENT
  Age: 56 Year
  Sex: Female
  Weight: 115 kg

DRUGS (6)
  1. CARBAMAZEPINE [Suspect]
     Indication: HYPOMANIA
     Dosage: 200 MG/DAY
     Route: 048
     Dates: start: 20050705, end: 20050701
  2. PRIADEL [Concomitant]
     Indication: BIPOLAR DISORDER
     Dosage: 600-1200 MG/DAY
     Route: 065
     Dates: start: 19980101
  3. RISPERIDONE [Concomitant]
     Indication: BIPOLAR DISORDER
     Dosage: 3 MG, BID
     Route: 065
     Dates: start: 20050628
  4. AMLODIPINE [Concomitant]
     Dosage: 5 MG/DAY
     Route: 065
  5. METFORMIN [Concomitant]
     Indication: DIABETES MELLITUS
     Dosage: 500 MG, BID
     Route: 065
     Dates: start: 20050401
  6. OLANZAPINE [Concomitant]
     Dosage: UP TO 15MG/DAY
     Route: 065
     Dates: start: 20030101, end: 20050628

REACTIONS (1)
  - HEPATORENAL FAILURE [None]
